FAERS Safety Report 5530101-6 (Version None)
Quarter: 2007Q4

REPORT INFORMATION
  Report Type: 
  Country: None (occurrence: None)
  Receive Date: 20071130
  Receipt Date: 20071122
  Transmission Date: 20080405
  Serious: Yes (Hospitalization, Other)
  Sender: FDA-Public Use
  Company Number: PHNR2005AU01689

PATIENT
  Age: 46 Year
  Sex: Male

DRUGS (5)
  1. CLOZARIL [Suspect]
     Indication: SCHIZOPHRENIA
     Dosage: UP TO 100 MG/DAY
     Route: 048
     Dates: start: 20051116, end: 20051201
  2. CLOZARIL [Suspect]
     Dosage: SLOWLY TITRATED UP TO 300MG/DAY
     Dates: start: 20071109
  3. CLOZARIL [Suspect]
     Dosage: 12.5 - 75 MG PER DAY
     Dates: start: 20060213, end: 20060220
  4. CLOZARIL [Suspect]
     Dosage: 100MG MANE, 150MG NOCTE
     Route: 048
     Dates: start: 20071022, end: 20071107
  5. METFORMIN HCL [Concomitant]
     Dosage: 250MG BD
     Dates: start: 20021023

REACTIONS (5)
  - BUNDLE BRANCH BLOCK [None]
  - ELECTROCARDIOGRAM ABNORMAL [None]
  - HEART RATE INCREASED [None]
  - SINUS TACHYCARDIA [None]
  - TACHYCARDIA [None]
